FAERS Safety Report 24710722 (Version 1)
Quarter: 2024Q4

REPORT INFORMATION
  Report Type: Spontaneous
  Country: US (occurrence: US)
  Receive Date: 20241209
  Receipt Date: 20241209
  Transmission Date: 20250115
  Serious: Yes (Other)
  Sender: AUROBINDO
  Company Number: US-MLMSERVICE-20241118-PI263131-00232-1

PATIENT
  Age: 34 Year
  Sex: Female

DRUGS (9)
  1. MYCOPHENOLIC ACID [Suspect]
     Active Substance: MYCOPHENOLIC ACID
     Indication: Vogt-Koyanagi-Harada disease
     Dosage: 1500 MILLIGRAM, TWO TIMES A DAY [MYCOPHENOLATE MOFETIL TREATMENT WAS INITIATED AND TITRATED UP TO 15
     Route: 065
  2. PREDNISONE [Concomitant]
     Active Substance: PREDNISONE
     Indication: Chorioretinitis
     Dosage: 60 MILLIGRAM, ONCE A DAY [60 MG/DAY ON A 10 MG/WEEK TAPER]
     Route: 065
  3. PREDNISONE [Concomitant]
     Active Substance: PREDNISONE
     Dosage: 80 MILLIGRAM, ONCE A DAY [80 MG/DAY WITH A 10 MG TAPER]
     Route: 065
  4. TRIAMCINOLONE [Concomitant]
     Active Substance: TRIAMCINOLONE
     Indication: Chorioretinitis
     Dosage: UNK
     Route: 065
  5. DEXAMETHASONE [Concomitant]
     Active Substance: DEXAMETHASONE
     Indication: Chorioretinitis
     Dosage: 0.7 MILLIGRAM
     Route: 065
  6. METHOTREXATE [Concomitant]
     Active Substance: METHOTREXATE
     Indication: Product used for unknown indication
     Dosage: 10 MILLIGRAM, EVERY WEEK [10 MG/WEEK]
     Route: 065
  7. FLUOCINOLONE ACETONIDE [Concomitant]
     Active Substance: FLUOCINOLONE ACETONIDE
     Indication: Chorioretinitis
     Dosage: 0.59 MILLIGRAM
     Route: 065
  8. SOLU-MEDROL [Concomitant]
     Active Substance: METHYLPREDNISOLONE SODIUM SUCCINATE
     Indication: Product used for unknown indication
     Dosage: 1 GRAM, DAILY [1G/DAILY FOR 3 DAYS]
     Route: 042
  9. RITUXIMAB [Concomitant]
     Active Substance: RITUXIMAB
     Indication: Product used for unknown indication
     Dosage: UNK
     Route: 065

REACTIONS (3)
  - Lymphoproliferative disorder [Recovering/Resolving]
  - Ocular lymphoma [Recovering/Resolving]
  - B-cell lymphoma [Recovering/Resolving]
